FAERS Safety Report 21553711 (Version 1)
Quarter: 2022Q4

REPORT INFORMATION
  Report Type: Spontaneous
  Country: FR (occurrence: FR)
  Receive Date: 20221104
  Receipt Date: 20221104
  Transmission Date: 20230113
  Serious: Yes (Hospitalization, Other)
  Sender: FDA-Public Use
  Company Number: FR-AFSSAPS-CN20221979

PATIENT
  Age: 51 Year
  Sex: Female
  Weight: 80 kg

DRUGS (2)
  1. DOXYLAMINE [Suspect]
     Active Substance: DOXYLAMINE
     Indication: Poisoning deliberate
     Dosage: 450 MILLIGRAM (30CP * 15MG )
     Route: 048
     Dates: start: 20211001, end: 20211001
  2. ACETAMINOPHEN [Suspect]
     Active Substance: ACETAMINOPHEN
     Indication: Poisoning deliberate
     Dosage: 8 GRAM (8CP * 1G )
     Route: 048
     Dates: start: 20211001, end: 20211001

REACTIONS (6)
  - Hepatic cytolysis [Recovering/Resolving]
  - Toxicity to various agents [Recovered/Resolved]
  - Pneumonia aspiration [Recovered/Resolved]
  - Vomiting [Recovered/Resolved]
  - Rhabdomyolysis [Recovering/Resolving]
  - Coma [Recovered/Resolved]

NARRATIVE: CASE EVENT DATE: 20211001
